FAERS Safety Report 5143622-5 (Version None)
Quarter: 2006Q4

REPORT INFORMATION
  Report Type: 
  Country: None (occurrence: None)
  Receive Date: 20061030
  Receipt Date: 20061016
  Transmission Date: 20070319
  Serious: Yes (Hospitalization)
  Sender: FDA-Public Use
  Company Number: 2006127272

PATIENT
  Age: 57 Year
  Sex: Male
  Weight: 100 kg

DRUGS (5)
  1. LYRICA [Suspect]
     Dosage: 300 GM (150 MG, 2 IN 1 D), ORAL
     Route: 048
     Dates: start: 20060728
  2. LOVENOX [Suspect]
     Dosage: 40 MG (40 MG, 1 IN 1 D), SUBCUTANEOUS
     Route: 058
     Dates: start: 20060815, end: 20060829
  3. ALLOPURINOL [Suspect]
     Dosage: 300 MG (300 MG, 1 IN 1 D), ORAL
     Route: 048
     Dates: start: 20040101
  4. SIMVASTATIN [Concomitant]
  5. MORPHINE SULFATE [Concomitant]

REACTIONS (11)
  - ABDOMINAL PAIN [None]
  - DIARRHOEA [None]
  - DRUG HYPERSENSITIVITY [None]
  - EOSINOPHILIA [None]
  - HEADACHE [None]
  - LEUKOPENIA [None]
  - LYMPHADENOPATHY MEDIASTINAL [None]
  - PYREXIA [None]
  - THROMBOCYTOPENIA [None]
  - TOXIC SKIN ERUPTION [None]
  - VASCULITIS [None]
